FAERS Safety Report 4349888-3 (Version None)
Quarter: 2004Q2

REPORT INFORMATION
  Report Type: 
  Country: None (occurrence: None)
  Receive Date: 20040428
  Receipt Date: 20040428
  Transmission Date: 20050107
  Serious: Yes (Other)
  Sender: FDA-Public Use
  Company Number: None

PATIENT
  Age: 38 Year
  Sex: Female
  Weight: 99 kg

DRUGS (3)
  1. WARFARIN SODIUM [Suspect]
     Indication: PULMONARY EMBOLISM
     Dosage: 6 MG QD ORALLY
     Route: 048
     Dates: start: 20040101, end: 20040301
  2. LEXAPRO [Concomitant]
  3. LISINOPRIL [Concomitant]

REACTIONS (3)
  - DRUG EFFECT DECREASED [None]
  - INTERNATIONAL NORMALISED RATIO DECREASED [None]
  - PHARMACEUTICAL PRODUCT COMPLAINT [None]
